FAERS Safety Report 13795023 (Version 1)
Quarter: 2017Q3

REPORT INFORMATION
  Report Type: Spontaneous
  Country: GB (occurrence: GB)
  Receive Date: 20170726
  Receipt Date: 20170726
  Transmission Date: 20171127
  Serious: Yes (Hospitalization)
  Sender: FDA-Public Use
  Company Number: GB-ACCORD-056031

PATIENT
  Age: 72 Year
  Sex: Male

DRUGS (16)
  1. COTRIMOXAZOLE [Concomitant]
     Active Substance: SULFAMETHOXAZOLE\TRIMETHOPRIM
  2. DIGOXIN. [Concomitant]
     Active Substance: DIGOXIN
  3. ENOXAPARIN [Concomitant]
     Active Substance: ENOXAPARIN
  4. PARACETAMOL [Concomitant]
     Active Substance: ACETAMINOPHEN
  5. DOXYCYCLINE. [Concomitant]
     Active Substance: DOXYCYCLINE
  6. RANITIDINE. [Concomitant]
     Active Substance: RANITIDINE
  7. CALCIUM RESONIUM [Concomitant]
  8. DIETHANOLAMINE FUSIDATE/FUSIDATE SODIUM/FUSIDIC ACID [Concomitant]
  9. ALOGLIPTIN. [Concomitant]
     Active Substance: ALOGLIPTIN
  10. RAMIPRIL. [Concomitant]
     Active Substance: RAMIPRIL
  11. CARBOCYSTEINE [Suspect]
     Active Substance: CARBOCYSTEINE
     Indication: PRODUCT USED FOR UNKNOWN INDICATION
     Route: 048
     Dates: end: 20170604
  12. CLOPIDOGREL [Suspect]
     Active Substance: CLOPIDOGREL BISULFATE
     Indication: CEREBROVASCULAR ACCIDENT
     Route: 048
     Dates: end: 20170629
  13. CODEINE [Concomitant]
     Active Substance: CODEINE
  14. METFORMIN [Concomitant]
     Active Substance: METFORMIN HYDROCHLORIDE
  15. OMEPRAZOLE. [Concomitant]
     Active Substance: OMEPRAZOLE
  16. QUININE [Concomitant]
     Active Substance: QUININE

REACTIONS (2)
  - Duodenal ulcer haemorrhage [Recovering/Resolving]
  - Duodenitis [Recovering/Resolving]

NARRATIVE: CASE EVENT DATE: 20170629
